FAERS Safety Report 25911614 (Version 1)
Quarter: 2025Q4

REPORT INFORMATION
  Report Type: Spontaneous
  Country: CA (occurrence: CA)
  Receive Date: 20251013
  Receipt Date: 20251013
  Transmission Date: 20260117
  Serious: Yes (Other)
  Sender: CELLTRION
  Company Number: CA-CELLTRION INC.-2025CA036466

PATIENT

DRUGS (2)
  1. INFLIXIMAB [Suspect]
     Active Substance: INFLIXIMAB
     Indication: Crohn^s disease
     Dosage: 5 MG/KG (400 MG) EVERY 8 WEEKS
     Route: 042
     Dates: start: 20250614
  2. INFLIXIMAB [Suspect]
     Active Substance: INFLIXIMAB
     Dosage: 5 MG/KG (400 MG) EVERY 8 WEEKS
     Route: 042
     Dates: start: 20250929

REACTIONS (2)
  - Tooth extraction [Unknown]
  - Overdose [Unknown]

NARRATIVE: CASE EVENT DATE: 20250927
